FAERS Safety Report 20567167 (Version 1)
Quarter: 2022Q1

REPORT INFORMATION
  Report Type: Spontaneous
  Country: US (occurrence: None)
  Receive Date: 20220308
  Receipt Date: 20220308
  Transmission Date: 20220424
  Serious: Yes (Hospitalization)
  Sender: FDA-Public Use
  Company Number: None

PATIENT
  Age: 70 Year
  Sex: Male
  Weight: 80 kg

DRUGS (2)
  1. CYCLOPHOSPHAMIDE [Suspect]
     Active Substance: CYCLOPHOSPHAMIDE
  2. FLUDARABINE [Suspect]
     Active Substance: FLUDARABINE PHOSPHATE

REACTIONS (4)
  - Cancer pain [None]
  - Pain in extremity [None]
  - Abdominal pain [None]
  - Loss of consciousness [None]

NARRATIVE: CASE EVENT DATE: 20220304
